FAERS Safety Report 20461117 (Version 2)
Quarter: 2022Q1

REPORT INFORMATION
  Report Type: Report from Study
  Country: US (occurrence: US)
  Receive Date: 20220211
  Receipt Date: 20220214
  Transmission Date: 20220423
  Serious: No
  Sender: FDA-Public Use
  Company Number: US-HRARD-2021000237

PATIENT
  Age: 49 Year
  Sex: Male

DRUGS (6)
  1. LYSODREN [Suspect]
     Active Substance: MITOTANE
     Dosage: 500 MG QID
     Route: 048
     Dates: start: 20201121
  2. LYSODREN [Suspect]
     Active Substance: MITOTANE
     Dosage: 1000 MG TID
     Route: 048
  3. CORTEF [Concomitant]
     Active Substance: HYDROCORTISONE
  4. TRAZODONE [Concomitant]
     Active Substance: TRAZODONE HYDROCHLORIDE
  5. VITAMINS [Concomitant]
     Active Substance: VITAMINS
  6. VITAMIN B12 [Concomitant]
     Active Substance: CYANOCOBALAMIN

REACTIONS (2)
  - Malaise [Not Recovered/Not Resolved]
  - Off label use [Not Recovered/Not Resolved]

NARRATIVE: CASE EVENT DATE: 20201121
